FAERS Safety Report 10080616 (Version 1)
Quarter: 2014Q2

REPORT INFORMATION
  Report Type: Spontaneous
  Country: BR (occurrence: BR)
  Receive Date: 20140416
  Receipt Date: 20140416
  Transmission Date: 20141212
  Serious: Yes (Hospitalization)
  Sender: FDA-Public Use
  Company Number: BR-ACCORD-023110

PATIENT
  Age: 70 Year
  Sex: Female
  Weight: 46.3 kg

DRUGS (5)
  1. NAUSEDRON [Concomitant]
     Indication: PROPHYLAXIS
     Route: 042
     Dates: start: 20140328, end: 20140328
  2. PACLITAXEL [Suspect]
     Indication: BREAST CANCER
     Dosage: THE PATIENT HAD ALSO RECEIVED PACLITAXEL 175MG/M2 ON 07-MAR-2014.
     Route: 042
     Dates: start: 20140328, end: 20140328
  3. RANITIDINE [Concomitant]
     Indication: PROPHYLAXIS
     Route: 042
     Dates: start: 20140328, end: 20140328
  4. DEXAMETHASONE [Concomitant]
     Indication: PROPHYLAXIS
     Dosage: SF 100 ML + DEXAMETHASONE
     Route: 042
     Dates: start: 20140328, end: 20140328
  5. DIFENIDRIN [Concomitant]
     Indication: PROPHYLAXIS
     Dosage: SF 100 ML + 50 MG DIFENIDRIN
     Route: 042
     Dates: start: 20140328, end: 20140328

REACTIONS (3)
  - Back pain [Recovering/Resolving]
  - Oxygen saturation decreased [Recovering/Resolving]
  - Hyperaemia [Recovering/Resolving]
